FAERS Safety Report 4669128-5 (Version None)
Quarter: 2005Q2

REPORT INFORMATION
  Report Type: 
  Country: None (occurrence: None)
  Receive Date: 20050519
  Receipt Date: 20050510
  Transmission Date: 20051028
  Serious: Yes (Hospitalization)
  Sender: FDA-Public Use
  Company Number: 2005-05-0690

PATIENT
  Age: 19 Year
  Sex: Female

DRUGS (1)
  1. INTRON A [Suspect]
     Indication: ACUTE LEUKAEMIA
     Dosage: 7.5-5 MU QD SUBCUTANEOUS
     Route: 058
     Dates: start: 20020228, end: 20020916

REACTIONS (2)
  - ASEPTIC NECROSIS BONE [None]
  - NECROSIS ISCHAEMIC [None]
